FAERS Safety Report 19617800 (Version 1)
Quarter: 2021Q3

REPORT INFORMATION
  Report Type: Spontaneous
  Country: US (occurrence: US)
  Receive Date: 20210728
  Receipt Date: 20210728
  Transmission Date: 20211014
  Serious: No
  Sender: FDA-Public Use
  Company Number: US-EMMAUS MEDICAL, INC.-EMM202101-000013

PATIENT
  Sex: Female

DRUGS (2)
  1. OXBRYTA [Concomitant]
     Active Substance: VOXELOTOR
     Indication: PAIN
  2. ENDARI [Suspect]
     Active Substance: GLUTAMINE
     Indication: SICKLE CELL ANAEMIA
     Route: 048
     Dates: start: 20180827

REACTIONS (3)
  - Drug interaction [Recovered/Resolved]
  - Dehydration [Recovering/Resolving]
  - Therapy change [Unknown]
